FAERS Safety Report 7999183-6 (Version None)
Quarter: 2011Q4

REPORT INFORMATION
  Report Type: 
  Country: None (occurrence: None)
  Receive Date: 20111216
  Receipt Date: 20111205
  Transmission Date: 20120403
  Serious: Yes (Hospitalization, Other)
  Sender: FDA-Public Use
  Company Number: 2011P1013911

PATIENT
  Age: 82 Year
  Sex: Female

DRUGS (2)
  1. ATROPINE [Suspect]
     Indication: STRESS ECHOCARDIOGRAM
     Dosage: 2 MG;
  2. METOPROLOL SUCCINATE [Concomitant]

REACTIONS (12)
  - DYSARTHRIA [None]
  - DYSPHAGIA [None]
  - DISORIENTATION [None]
  - ATAXIA [None]
  - FLUSHING [None]
  - HEART RATE DECREASED [None]
  - DRY MOUTH [None]
  - SOMNOLENCE [None]
  - HEADACHE [None]
  - TREMOR [None]
  - AGITATION [None]
  - ANTICHOLINERGIC SYNDROME [None]
